FAERS Safety Report 9333351 (Version 3)
Quarter: 2014Q2

REPORT INFORMATION
  Report Type: Spontaneous
  Country: JP (occurrence: None)
  Receive Date: 20130604
  Receipt Date: 20140401
  Transmission Date: 20141212
  Serious: Yes (Other)
  Sender: FDA-Public Use
  Company Number: ADR-2013-00925

PATIENT
  Age: 6 Year
  Sex: Female

DRUGS (6)
  1. GABALON [Suspect]
     Route: 037
  2. ATARAX-P [Concomitant]
  3. DANTRIUM [Concomitant]
  4. LAMICTAL [Concomitant]
  5. RISPERDAL [Concomitant]
  6. DIAPP [Concomitant]

REACTIONS (3)
  - Myotonia [None]
  - Somnolence [None]
  - Overdose [None]
